FAERS Safety Report 7593001-6 (Version None)
Quarter: 2011Q3

REPORT INFORMATION
  Report Type: 
  Country: None (occurrence: None)
  Receive Date: 20110706
  Receipt Date: 20110628
  Transmission Date: 20111222
  Serious: Yes (Hospitalization)
  Sender: FDA-Public Use
  Company Number: JP-GLAXOSMITHKLINE-B0715278A

PATIENT
  Sex: Female

DRUGS (9)
  1. GASMOTIN [Concomitant]
     Indication: DIALYSIS
     Dosage: 15MG PER DAY
     Route: 048
     Dates: start: 19980101
  2. YOUCOBAL [Concomitant]
     Indication: DIALYSIS
     Dosage: 1500MCG PER DAY
     Route: 048
     Dates: start: 19980101
  3. FALECALCITRIOL [Concomitant]
     Dosage: .3MCG PER DAY
  4. PROMAC [Concomitant]
     Indication: DIALYSIS
     Dosage: 150MG PER DAY
     Route: 048
     Dates: start: 19980101
  5. VALTREX [Suspect]
     Indication: HERPES ZOSTER
     Dosage: 250MG PER DAY
     Route: 048
     Dates: start: 20110412, end: 20110413
  6. CINAL [Concomitant]
     Indication: DIALYSIS
     Dosage: 600MG PER DAY
     Route: 048
     Dates: start: 19980101
  7. AMLODIPINE BESYLATE [Concomitant]
     Indication: DIALYSIS
     Dosage: 5MG PER DAY
     Route: 048
     Dates: start: 19980101
  8. LANSOPRAZOLE [Concomitant]
     Indication: DIALYSIS
     Dosage: 15MG PER DAY
     Route: 048
     Dates: start: 19980101
  9. RENAGEL [Concomitant]
     Indication: DIALYSIS
     Dosage: 750MG PER DAY
     Route: 048
     Dates: start: 19980101

REACTIONS (5)
  - ASTHENIA [None]
  - HYPOAESTHESIA [None]
  - DEPRESSED LEVEL OF CONSCIOUSNESS [None]
  - DYSARTHRIA [None]
  - MUSCULAR WEAKNESS [None]
